FAERS Safety Report 26213420 (Version 1)
Quarter: 2025Q4

REPORT INFORMATION
  Report Type: Spontaneous
  Country: US (occurrence: US)
  Receive Date: 20251230
  Receipt Date: 20251230
  Transmission Date: 20260118
  Serious: No
  Sender: INSMED
  Company Number: US-INSMED, INC.-2025-07540-US

PATIENT
  Sex: Female

DRUGS (1)
  1. BRENSOCATIB [Suspect]
     Active Substance: BRENSOCATIB
     Indication: Lung disorder
     Dosage: 25 MILLIGRAM, QD
     Route: 048
     Dates: start: 20251023

REACTIONS (1)
  - Off label use [Unknown]
